FAERS Safety Report 6058038-7 (Version None)
Quarter: 2009Q1

REPORT INFORMATION
  Report Type: 
  Country: None (occurrence: None)
  Receive Date: 20090127
  Receipt Date: 20090113
  Transmission Date: 20090719
  Serious: Yes (Other)
  Sender: FDA-Public Use
  Company Number: 2009000146

PATIENT
  Age: 56 Year
  Sex: Male

DRUGS (4)
  1. ERLOTINIB (ERLOTINIB) (TABLET) (ERLOTINIB) [Suspect]
     Indication: MALIGNANT HEPATOBILIARY NEOPLASM
     Dosage: (100 MG, QD) ,ORAL
     Route: 048
     Dates: start: 20080317
  2. BEVACIZUMAB (INJECTION FOR INFUSION0 [Suspect]
     Indication: MALIGNANT HEPATOBILIARY NEOPLASM
     Dosage: (340 MG, Q2W) ,INTRAVENOUS
     Route: 042
     Dates: start: 20080317
  3. GLYCYRRHIZA GLABRA (GLYCYRRHIZA GLABRA) [Concomitant]
  4. AMBROXOL HYDROCHLORIDE (AMBROXOL HYDROCHLORIDE) [Concomitant]

REACTIONS (1)
  - NEUTROPENIA [None]
